FAERS Safety Report 4340844-8 (Version None)
Quarter: 2004Q2

REPORT INFORMATION
  Report Type: 
  Country: None (occurrence: None)
  Receive Date: 20040419
  Receipt Date: 20030509
  Transmission Date: 20050107
  Serious: Yes (Death, Hospitalization)
  Sender: FDA-Public Use
  Company Number: FR-BRISTOL-MYERS SQUIBB COMPANY-12273231

PATIENT
  Age: 49 Year
  Sex: Male
  Weight: 49 kg

DRUGS (4)
  1. ZERIT [Suspect]
     Dosage: 1MG/1ML POWDER FOR ORAL SOLUTION-40 MG TWICE DAILY
     Route: 048
     Dates: start: 20030426
  2. EPIVIR [Concomitant]
  3. NORVIR [Concomitant]
  4. CRIXIVAN [Concomitant]

REACTIONS (3)
  - ACCIDENTAL OVERDOSE [None]
  - CACHEXIA [None]
  - DEATH [None]
